FAERS Safety Report 9008244 (Version 1)
Quarter: 2012Q4

REPORT INFORMATION
  Report Type: Spontaneous
  Country: FR (occurrence: None)
  Receive Date: 20121227
  Receipt Date: 20121227
  Transmission Date: 20130627
  Serious: Yes (Hospitalization)
  Sender: FDA-Public Use
  Company Number: TPA2012A10214

PATIENT
  Age: 82 Year
  Sex: Female

DRUGS (8)
  1. ADENURIC (FEBUXOSTAT) [Suspect]
     Route: 048
     Dates: end: 20121117
  2. REMINYL (GALANTAMINE HYDROBROMIDE) [Suspect]
     Route: 048
     Dates: start: 201103, end: 20121117
  3. PROCORALAN [Suspect]
     Indication: DRUG USE FOR UNKNOWN INDICATION
     Dates: end: 20121116
  4. ESIDREX (HYDROCHLOROTHIAZIDE) [Concomitant]
  5. ATACAND (CANDESARTAN CILEXETIL) [Concomitant]
  6. HYPERIUM (RILMENIDINE PHOSPAHTE) [Concomitant]
  7. SERESTA (OXAZEPAM) [Concomitant]
  8. SOLIAN O(AMISULPRIDE) [Concomitant]

REACTIONS (3)
  - Atrioventricular block second degree [None]
  - Bradycardia [None]
  - Hypertension [None]
